FAERS Safety Report 15454368 (Version 2)
Quarter: 2018Q4

REPORT INFORMATION
  Report Type: Spontaneous
  Country: US (occurrence: US)
  Receive Date: 20181002
  Receipt Date: 20181117
  Transmission Date: 20190204
  Serious: Yes (Other)
  Sender: FDA-Public Use
  Company Number: US-009507513-1809USA009123

PATIENT
  Age: 23 Year
  Sex: Female
  Weight: 78.9 kg

DRUGS (2)
  1. NEXPLANON [Suspect]
     Active Substance: ETONOGESTREL
     Indication: CONTRACEPTION
     Dosage: IMPLANT (1 DF), UNK
     Route: 059
     Dates: start: 2015, end: 20180910
  2. NEXPLANON [Suspect]
     Active Substance: ETONOGESTREL
     Dosage: IMPLANT (1 DF), 3 YEARS
     Route: 059
     Dates: start: 2011, end: 2014

REACTIONS (3)
  - Unintended pregnancy [Unknown]
  - Ear infection [Unknown]
  - Pregnancy with implant contraceptive [Unknown]

NARRATIVE: CASE EVENT DATE: 20180402
